FAERS Safety Report 12547416 (Version 1)
Quarter: 2016Q3

REPORT INFORMATION
  Report Type: Spontaneous
  Country: US (occurrence: US)
  Receive Date: 20160711
  Receipt Date: 20160711
  Transmission Date: 20161109
  Serious: Yes (Hospitalization, Other)
  Sender: FDA-Public Use
  Company Number: US-APOTEX-2016AP009684

PATIENT
  Age: 80 Year
  Sex: Male

DRUGS (1)
  1. CLARITHROMYCIN. [Suspect]
     Active Substance: CLARITHROMYCIN
     Indication: HELICOBACTER INFECTION
     Dosage: UNK, UNKNOWN
     Route: 065

REACTIONS (3)
  - Drug interaction [Unknown]
  - Acute kidney injury [Recovered/Resolved]
  - Rhabdomyolysis [Unknown]
